FAERS Safety Report 7509794-X (Version None)
Quarter: 2011Q2

REPORT INFORMATION
  Report Type: 
  Country: None (occurrence: None)
  Receive Date: 20110527
  Receipt Date: 20110517
  Transmission Date: 20111010
  Serious: Yes (Hospitalization, Congenital Anomaly)
  Sender: FDA-Public Use
  Company Number: A0685063A

PATIENT
  Sex: Male
  Weight: 2.6 kg

DRUGS (5)
  1. ZOLOFT [Concomitant]
     Route: 064
  2. PAXIL [Suspect]
     Indication: DEPRESSION
     Route: 064
     Dates: start: 19990504, end: 19991102
  3. NIX [Concomitant]
     Dates: start: 20000221
  4. BRETHINE [Concomitant]
     Route: 064
     Dates: start: 19991006
  5. PRENATAL VITAMINS [Concomitant]
     Indication: PREGNANCY
     Route: 064

REACTIONS (2)
  - DRUG EXPOSURE DURING PREGNANCY [None]
  - ATRIAL SEPTAL DEFECT [None]
